FAERS Safety Report 8064726 (Version 3)
Quarter: 2012Q4

REPORT INFORMATION
  Report Type: 
  Country: US (occurrence: US)
  Receive Date: 20110802
  Receipt Date: 20120918
  Transmission Date: 20130627
  Serious: Yes (Other)
  Sender: FDA-Public Use
  Company Number: US-ROCHE-791336

PATIENT
  Age: 22 Year
  Sex: Male
  Weight: 131.66 kg

DRUGS (3)
  1. ACCUTANE [Suspect]
     Indication: ACNE CYSTIC
     Route: 065
  2. ACCUTANE [Suspect]
     Route: 065
  3. ACCUTANE [Suspect]
     Route: 065

REACTIONS (12)
  - Injury [Unknown]
  - Crohn^s disease [Unknown]
  - Inflammatory bowel disease [Unknown]
  - Anal fissure [Unknown]
  - Urethroperineal fistula [Unknown]
  - Asteatosis [Unknown]
  - Cheilitis [Unknown]
  - Hidradenitis [Unknown]
  - Dry skin [Unknown]
  - Epistaxis [Unknown]
  - Dermatitis [Unknown]
  - Depression [Unknown]
